FAERS Safety Report 6220354-3 (Version None)
Quarter: 2009Q2

REPORT INFORMATION
  Report Type: 
  Country: None (occurrence: None)
  Receive Date: 20090610
  Receipt Date: 20090529
  Transmission Date: 20091009
  Serious: Yes (Hospitalization, Other)
  Sender: FDA-Public Use
  Company Number: FR-PFIZER INC-2009193829

PATIENT
  Age: 65 Year

DRUGS (7)
  1. SUNITINIB MALATE [Suspect]
     Indication: NEOPLASM MALIGNANT
     Dosage: 37.5 MG, UNK
     Route: 048
     Dates: start: 20090206
  2. LASIX [Suspect]
     Dosage: 40 MG, 1X/DAY
  3. ALDACTONE [Suspect]
     Dosage: 150 MG, 1X/DAY
  4. AVLOCARDYL [Concomitant]
     Dosage: 160 MG, 1X/DAY
  5. NEXIUM [Concomitant]
     Dosage: 20 MG, 1X/DAY
  6. LOPERAMIDE [Concomitant]
     Dosage: 1 DF, 1X/DAY
  7. ZESTRIL [Concomitant]
     Dosage: 20 MG, 1X/DAY

REACTIONS (4)
  - ASTHENIA [None]
  - ESCHERICHIA SEPSIS [None]
  - HYPONATRAEMIA [None]
  - RENAL FAILURE [None]
